FAERS Safety Report 5523720-4 (Version None)
Quarter: 2007Q4

REPORT INFORMATION
  Report Type: 
  Country: None (occurrence: None)
  Receive Date: 20071121
  Receipt Date: 20071112
  Transmission Date: 20080405
  Serious: Yes (Hospitalization)
  Sender: FDA-Public Use
  Company Number: US-ABBOTT-07P-163-0420792-00

PATIENT
  Sex: Female
  Weight: 52.21 kg

DRUGS (12)
  1. HUMIRA [Suspect]
     Indication: CROHN'S DISEASE
     Route: 058
     Dates: start: 20070926
  2. HUMIRA [Suspect]
     Route: 058
     Dates: start: 20070911, end: 20070911
  3. HUMIRA [Suspect]
     Route: 058
     Dates: start: 20070820, end: 20070820
  4. CALCITRIOL [Concomitant]
     Indication: DRUG USE FOR UNKNOWN INDICATION
  5. VICODIN [Concomitant]
     Indication: DRUG USE FOR UNKNOWN INDICATION
  6. LOMOTIL [Concomitant]
     Indication: DRUG USE FOR UNKNOWN INDICATION
  7. LOPRIMIDE [Concomitant]
     Indication: DRUG USE FOR UNKNOWN INDICATION
  8. MAGNESIUM SULFATE [Concomitant]
     Indication: DRUG USE FOR UNKNOWN INDICATION
  9. POTASSIUM CL [Concomitant]
     Indication: DRUG USE FOR UNKNOWN INDICATION
  10. PHENERGAN HCL [Concomitant]
     Indication: DRUG USE FOR UNKNOWN INDICATION
  11. SIMVASTATIN [Concomitant]
     Indication: DRUG USE FOR UNKNOWN INDICATION
  12. PARACETAMOL [Concomitant]
     Indication: DRUG USE FOR UNKNOWN INDICATION

REACTIONS (7)
  - CATHETER SEPSIS [None]
  - CHILLS [None]
  - DISSEMINATED INTRAVASCULAR COAGULATION [None]
  - DIZZINESS [None]
  - ENTEROBACTER INFECTION [None]
  - PSEUDOMONAS INFECTION [None]
  - PYREXIA [None]
